FAERS Safety Report 6634244-5 (Version None)
Quarter: 2010Q1

REPORT INFORMATION
  Report Type: 
  Country: None (occurrence: None)
  Receive Date: 20100315
  Receipt Date: 20100303
  Transmission Date: 20100710
  Serious: Yes (Other)
  Sender: FDA-Public Use
  Company Number: US-KINGPHARMUSA00001-K201000258

PATIENT
  Sex: Male
  Weight: 108.84 kg

DRUGS (1)
  1. THROMBIN NOS [Suspect]
     Indication: SPINAL COMPRESSION FRACTURE
     Dosage: 20000 U, UNK
     Dates: start: 20070112, end: 20070112

REACTIONS (2)
  - POSTOPERATIVE WOUND INFECTION [None]
  - WOUND INFECTION STAPHYLOCOCCAL [None]
